FAERS Safety Report 8323028-8 (Version None)
Quarter: 2012Q2

REPORT INFORMATION
  Report Type: 
  Country: None (occurrence: None)
  Receive Date: 20120430
  Receipt Date: 20120315
  Transmission Date: 20120825
  Serious: Yes (Death, Other)
  Sender: FDA-Public Use
  Company Number: CA-SANOFI-AVENTIS-2012SA028521

PATIENT
  Age: 60 Year
  Sex: Female

DRUGS (3)
  1. EPIRUBICIN [Concomitant]
  2. CAPECITABINE [Concomitant]
  3. ELOXATIN [Suspect]
     Indication: GASTRIC NEOPLASM
     Route: 065

REACTIONS (3)
  - DEATH [None]
  - DYSAESTHESIA PHARYNX [None]
  - PAIN IN EXTREMITY [None]
